FAERS Safety Report 17845567 (Version 2)
Quarter: 2020Q2

REPORT INFORMATION
  Report Type: Spontaneous
  Country: US (occurrence: US)
  Receive Date: 20200601
  Receipt Date: 20200624
  Transmission Date: 20200714
  Serious: No
  Sender: FDA-Public Use
  Company Number: US-PFIZER INC-2016395165

PATIENT
  Age: 75 Year
  Sex: Female

DRUGS (22)
  1. FLAXSEED [Concomitant]
     Active Substance: FLAX SEED
     Dosage: UNK, 1X/DAY
     Route: 048
  2. PROMETHAZINE HCL [Concomitant]
     Active Substance: PROMETHAZINE HYDROCHLORIDE
     Indication: NAUSEA
     Dosage: 12.5 MG, AS NEEDED (1 TABLET AS NEEDED)
  3. LOVASTATIN. [Concomitant]
     Active Substance: LOVASTATIN
     Indication: BLOOD CHOLESTEROL ABNORMAL
     Dosage: 20 MG, 2X/DAY
  4. ESTROGENS CONJUGATED [Concomitant]
     Active Substance: ESTROGENS, CONJUGATED
     Dosage: 0.625 MG, 1X/DAY
  5. ASCORBIC ACID. [Concomitant]
     Active Substance: ASCORBIC ACID
     Dosage: 400 MG, DAILY
     Route: 048
  6. LINSEED OIL [Concomitant]
     Active Substance: HERBALS\LINSEED OIL
     Dosage: UNK, 1X/DAY
  7. LYRICA [Suspect]
     Active Substance: PREGABALIN
     Indication: POLYMYALGIA RHEUMATICA
  8. LEVOTHYROXINE SODIUM. [Concomitant]
     Active Substance: LEVOTHYROXINE SODIUM
     Indication: THYROID DISORDER
     Dosage: 75 UG, 1X/DAY
  9. COENZYME Q10 [Concomitant]
     Active Substance: UBIDECARENONE
     Dosage: 400 MG, 1X/DAY
  10. SENNOSIDES. [Concomitant]
     Active Substance: SENNOSIDES
     Dosage: 34.4 MG, 2X/DAY (4 CAPSULES TWICE DAILY)
  11. PREDNISONE. [Concomitant]
     Active Substance: PREDNISONE
     Dosage: 2.5 MG (TAKE AS DIRECTED)
  12. VITAMIN E [Concomitant]
     Active Substance: .ALPHA.-TOCOPHEROL
     Dosage: 400 IU, DAILY (1 CAPSULE DAILY)
  13. CHOLECALCIFEROL [Concomitant]
     Active Substance: CHOLECALCIFEROL
     Dosage: 40 IU, 1X/DAY
  14. CHROMIUM PICOLINATE [Concomitant]
     Active Substance: CHROMIUM PICOLINATE
     Dosage: 200 UG, 1X/DAY
  15. FLAXSEED [Concomitant]
     Active Substance: FLAX SEED
     Dosage: UNK, 1X/DAY
  16. MULTIPLE VITAMINS WITH MINERALS [Concomitant]
     Active Substance: MINERALS\VITAMINS
     Dosage: UNK, 1X/DAY
  17. FAMOTIDINE. [Concomitant]
     Active Substance: FAMOTIDINE
     Dosage: 20 MG, 2X/DAY
  18. DOCUSATE SODIUM + SENNA [Concomitant]
     Active Substance: DOCUSATE SODIUM\SENNOSIDE A\SENNOSIDE B
     Dosage: 1 DF, DAILY (AT BED TIME)
  19. LYRICA [Suspect]
     Active Substance: PREGABALIN
     Indication: FIBROMYALGIA
     Dosage: 75 MG, 3X/DAY
  20. BIOTIN [Concomitant]
     Active Substance: BIOTIN
     Dosage: 500 UG, 1X/DAY
  21. CYANOCOBALAMIN. [Concomitant]
     Active Substance: CYANOCOBALAMIN
     Dosage: 1000 UG, 1X/DAY
  22. NEBIVOLOL HCL [Concomitant]
     Active Substance: NEBIVOLOL
     Indication: BLOOD PRESSURE ABNORMAL
     Dosage: 5 MG, 1X/DAY

REACTIONS (1)
  - Migraine [Unknown]
